FAERS Safety Report 7562481-4 (Version None)
Quarter: 2011Q2

REPORT INFORMATION
  Report Type: 
  Country: None (occurrence: None)
  Receive Date: 20110621
  Receipt Date: 20110621
  Transmission Date: 20111010
  Serious: Yes (Disabling)
  Sender: FDA-Public Use
  Company Number: None

PATIENT
  Sex: Male
  Weight: 87.9978 kg

DRUGS (1)
  1. SIMVASTATIN [Suspect]
     Dosage: 80MG ONCE DAILY PO
     Route: 048
     Dates: start: 20100301, end: 20110609

REACTIONS (1)
  - MYALGIA [None]
